FAERS Safety Report 7889408-X (Version None)
Quarter: 2011Q4

REPORT INFORMATION
  Report Type: 
  Country: None (occurrence: None)
  Receive Date: 20111101
  Receipt Date: 20111018
  Transmission Date: 20120403
  Serious: Yes (Death)
  Sender: FDA-Public Use
  Company Number: GER/UKI/11/0021617

PATIENT
  Age: 18 Year
  Sex: Male

DRUGS (1)
  1. RISPERIDONE [Suspect]
     Indication: PSYCHOTIC BEHAVIOUR

REACTIONS (2)
  - SMALL INTESTINAL PERFORATION [None]
  - INFECTIOUS PERITONITIS [None]
